FAERS Safety Report 19862945 (Version 2)
Quarter: 2021Q4

REPORT INFORMATION
  Report Type: Other
  Country: US (occurrence: US)
  Receive Date: 20210921
  Receipt Date: 20211221
  Transmission Date: 20220303
  Serious: No
  Sender: FDA-Public Use
  Company Number: US-ACORDA-ACO_169714_2021

PATIENT
  Sex: Male

DRUGS (6)
  1. INBRIJA [Suspect]
     Active Substance: LEVODOPA
     Indication: On and off phenomenon
     Dosage: 84 MILLIGRAM, AS NEEDED, NOT TO EXCEED 5 DOSES A DAY
     Dates: start: 20210611
  2. INBRIJA [Suspect]
     Active Substance: LEVODOPA
     Indication: Parkinson^s disease
  3. RYTARY [Concomitant]
     Active Substance: CARBIDOPA\LEVODOPA
     Indication: Product used for unknown indication
     Dosage: 36.25/145MG: 4 PILLS IN AM AND 4PM, 3 PILLS AT 12PM AND 8PM
     Route: 065
  4. VENLAFAXINE [Concomitant]
     Active Substance: VENLAFAXINE HYDROCHLORIDE
     Indication: Product used for unknown indication
     Dosage: 150 MG AND 75 MG: TWO 150 MG PILLS, ONE 75MG PILL  TO TOTAL 375MG 1X/DAY
     Route: 065
  5. LORAZEPAM [Concomitant]
     Active Substance: LORAZEPAM
     Indication: Product used for unknown indication
     Dosage: 1MG: 4 PILLS AT 2PM, 1 PILL AT BEDTIME
     Route: 065
  6. LORAZEPAM [Concomitant]
     Active Substance: LORAZEPAM
     Dosage: 2MG: 1 PILL 3X/DAY
     Route: 065

REACTIONS (6)
  - Therapeutic product effect incomplete [Unknown]
  - Device issue [Unknown]
  - Product packaging difficult to open [Unknown]
  - Product storage error [Unknown]
  - Product use issue [Unknown]
  - Inappropriate schedule of product administration [Unknown]
